FAERS Safety Report 22146687 (Version 1)
Quarter: 2023Q1

REPORT INFORMATION
  Report Type: Spontaneous
  Country: NO (occurrence: NO)
  Receive Date: 20230328
  Receipt Date: 20230328
  Transmission Date: 20230417
  Serious: Yes (Other)
  Sender: FDA-Public Use
  Company Number: None

PATIENT
  Age: 52 Year
  Sex: Female

DRUGS (5)
  1. PROTOPIC [Suspect]
     Active Substance: TACROLIMUS
     Indication: Dermatitis atopic
     Dosage: UNTIL IMPROVEMENT. THEN AS NEEDED FOR MAINTENANCE.
     Dates: start: 201711
  2. PROTOPIC [Suspect]
     Active Substance: TACROLIMUS
     Indication: Dermatitis atopic
     Dosage: UNTIL IMPROVEMENT. THEN AS NEEDED FOR MAINTENANCE.
     Dates: start: 201711
  3. PROTOPIC [Suspect]
     Active Substance: TACROLIMUS
     Indication: Dermatitis allergic
     Dosage: UNTIL IMPROVEMENT. THEN AS NEEDED FOR MAINTENANCE.
     Dates: start: 201711
  4. PROTOPIC [Suspect]
     Active Substance: TACROLIMUS
     Indication: Dermatitis allergic
     Dosage: UNTIL IMPROVEMENT. THEN AS NEEDED FOR MAINTENANCE.
     Dates: start: 201711
  5. Behepan [Concomitant]
     Indication: Vitamin B12 deficiency
     Dosage: 1 DOSAGE FORM
     Dates: start: 201807

REACTIONS (2)
  - Chronic lymphocytic leukaemia [Not Recovered/Not Resolved]
  - Skin burning sensation [Recovered/Resolved]

NARRATIVE: CASE EVENT DATE: 20171101
